FAERS Safety Report 8533533-7 (Version None)
Quarter: 2012Q3

REPORT INFORMATION
  Report Type: 
  Country: None (occurrence: None)
  Receive Date: 20120724
  Receipt Date: 20120718
  Transmission Date: 20120928
  Serious: Yes (Other)
  Sender: FDA-Public Use
  Company Number: CO-PFIZER INC-2012174975

PATIENT
  Age: 44 Year
  Sex: Female

DRUGS (1)
  1. EFFEXOR [Suspect]
     Dosage: 75 MG, 1X/DAY
     Route: 048
     Dates: start: 20120709, end: 20120710

REACTIONS (4)
  - ARRHYTHMIA [None]
  - INSOMNIA [None]
  - FEELING OF DESPAIR [None]
  - DELUSIONAL DISORDER, PERSECUTORY TYPE [None]
